FAERS Safety Report 9640836 (Version 1)
Quarter: 2013Q4

REPORT INFORMATION
  Report Type: Report from Study
  Country: US (occurrence: US)
  Receive Date: 20131023
  Receipt Date: 20131023
  Transmission Date: 20140711
  Serious: No
  Sender: FDA-Public Use
  Company Number: US-ABBVIE-13P-163-1117123-00

PATIENT
  Age: 40 Year
  Sex: Female
  Weight: 74.91 kg

DRUGS (2)
  1. LUPRON DEPOT [Suspect]
     Indication: ENDOMETRIOSIS
     Route: 030
     Dates: start: 20121201, end: 20121201
  2. BIRTH CONTROL [Concomitant]
     Indication: CONTRACEPTION

REACTIONS (4)
  - Vaginal haemorrhage [Not Recovered/Not Resolved]
  - Feeling abnormal [Recovered/Resolved]
  - Altered visual depth perception [Recovered/Resolved]
  - Dizziness [Recovered/Resolved]
